FAERS Safety Report 19617728 (Version 1)
Quarter: 2021Q3

REPORT INFORMATION
  Report Type: Spontaneous
  Country: US (occurrence: US)
  Receive Date: 20210727
  Receipt Date: 20210727
  Transmission Date: 20211014
  Serious: Yes (Other)
  Sender: FDA-Public Use
  Company Number: US-ASTRAZENECA-2021A631546

PATIENT
  Age: 1017 Month
  Sex: Female
  Weight: 58.1 kg

DRUGS (2)
  1. ALBUTEROL. [Concomitant]
     Active Substance: ALBUTEROL
  2. BRILINTA [Suspect]
     Active Substance: TICAGRELOR
     Indication: STENT PLACEMENT
     Route: 048
     Dates: start: 2019, end: 20200310

REACTIONS (10)
  - Oxygen saturation decreased [Recovered/Resolved]
  - Speech disorder [Unknown]
  - Eye haemorrhage [Recovered/Resolved]
  - Asthenia [Unknown]
  - Middle insomnia [Unknown]
  - Body height decreased [Not Recovered/Not Resolved]
  - Pulmonary oedema [Recovering/Resolving]
  - Expired product administered [Unknown]
  - COVID-19 [Recovering/Resolving]
  - Illness [Recovering/Resolving]

NARRATIVE: CASE EVENT DATE: 202003
